FAERS Safety Report 10219819 (Version 4)
Quarter: 2025Q3

REPORT INFORMATION
  Report Type: Spontaneous
  Country: US (occurrence: US)
  Receive Date: 20140605
  Receipt Date: 20250919
  Transmission Date: 20251021
  Serious: Yes (Other)
  Sender: TARO
  Company Number: US-TARO-2014P1004568

PATIENT
  Age: 3 Year
  Sex: Male
  Weight: 13.61 kg

DRUGS (3)
  1. LORATADINE [Suspect]
     Active Substance: LORATADINE
     Indication: Seasonal allergy
     Dosage: 5 MG, 1X/DAY
     Route: 048
     Dates: start: 20140304, end: 20140306
  2. LORATADINE [Suspect]
     Active Substance: LORATADINE
     Dosage: 5 MG, 1X/DAY
     Route: 048
     Dates: start: 20140521
  3. DAILY CHILDRENS VITAMINS [Concomitant]

REACTIONS (5)
  - Bronchitis [Recovered/Resolved]
  - Oxygen saturation decreased [Recovering/Resolving]
  - Tracheal disorder [Unknown]
  - Dyspnoea [Recovering/Resolving]
  - Hypersensitivity [Unknown]

NARRATIVE: CASE EVENT DATE: 20140301
